FAERS Safety Report 7846674-4 (Version None)
Quarter: 2011Q4

REPORT INFORMATION
  Report Type: 
  Country: None (occurrence: None)
  Receive Date: 20111025
  Receipt Date: 20111013
  Transmission Date: 20120403
  Serious: Yes (Hospitalization)
  Sender: FDA-Public Use
  Company Number: PHHO2010US03717

PATIENT
  Sex: Female
  Weight: 56.7 kg

DRUGS (3)
  1. TACROLIMUS [Suspect]
     Indication: LIVER TRANSPLANT
     Dosage: 5 MG, BID
     Route: 048
     Dates: start: 20100223
  2. ZORTRESS [Suspect]
     Indication: LIVER TRANSPLANT
     Dosage: 2 MG, BID
     Route: 048
     Dates: start: 20100324
  3. TACROLIMUS [Suspect]
     Dosage: 2 MG, BID
     Route: 048

REACTIONS (18)
  - LIVER TRANSPLANT REJECTION [None]
  - COLITIS [None]
  - PERIPORTAL OEDEMA [None]
  - ABDOMINAL PAIN [None]
  - ANASTOMOTIC COMPLICATION [None]
  - BILE DUCT STENOSIS [None]
  - RENAL DISORDER [None]
  - BILIARY DILATATION [None]
  - TRAUMATIC RENAL INJURY [None]
  - LIVER ABSCESS [None]
  - ENTEROCOLITIS INFECTIOUS [None]
  - BILIARY CIRRHOSIS PRIMARY [None]
  - BILIARY TRACT DISORDER [None]
  - DEVICE DISLOCATION [None]
  - DILATATION INTRAHEPATIC DUCT ACQUIRED [None]
  - LUNG NEOPLASM [None]
  - RENAL HAEMATOMA [None]
  - CHOLESTASIS [None]
